FAERS Safety Report 10146815 (Version 1)
Quarter: 2014Q2

REPORT INFORMATION
  Report Type: Spontaneous
  Country: GB (occurrence: None)
  Receive Date: 20140429
  Receipt Date: 20140429
  Transmission Date: 20141212
  Serious: Yes (Other)
  Sender: FDA-Public Use
  Company Number: AUR-APL-2014-04996

PATIENT
  Age: 72 Year
  Sex: Male
  Weight: 75.29 kg

DRUGS (7)
  1. SIMVASTATIN (SIMVASTATIN) [Suspect]
     Indication: BLOOD CHOLESTEROL INCREASED
     Route: 048
     Dates: end: 2013
  2. TAMSULOSIN (TAMSULOSIN) [Suspect]
     Indication: PRODUCT USED FOR UNKNOWN INDICATION
  3. COENZYME Q10 (UBIDECARENONE) [Concomitant]
  4. DOCOSAHEXAENOIC ACID [Concomitant]
  5. EICOSAPENTAENOIC ACID [Concomitant]
  6. MULTIVITAMIN (VIGRAN) (ERGOCALCIFEOL, ASCORBIC ACID, PYRIDOXINE HYDROCHLORIDE, THIAMINE HYDROCHLORIDE, RETINOL, RIBOFLAVIN, NICOTINAMIDE, CALCIUM PANTHOTHENATE) [Concomitant]
  7. PERINOPRIL (PERINOPRIL) [Concomitant]

REACTIONS (10)
  - Urinary tract infection [None]
  - Myalgia [None]
  - Dry eye [None]
  - Insomnia [None]
  - Visual impairment [None]
  - Dehydration [None]
  - Back pain [None]
  - Gastrointestinal disorder [None]
  - Micturition urgency [None]
  - Pollakiuria [None]
